FAERS Safety Report 7101963-6 (Version None)
Quarter: 2010Q4

REPORT INFORMATION
  Report Type: 
  Country: None (occurrence: None)
  Receive Date: 20101115
  Receipt Date: 20101105
  Transmission Date: 20110411
  Serious: Yes (Other)
  Sender: FDA-Public Use
  Company Number: FR-GENZYME-POMP-1001124

PATIENT
  Sex: Male
  Weight: 15.3 kg

DRUGS (1)
  1. MYOZYME [Suspect]
     Indication: GLYCOGEN STORAGE DISEASE TYPE II
     Dosage: 450 MG, Q2W
     Route: 042
     Dates: start: 20060310

REACTIONS (1)
  - PERICARDITIS [None]
